FAERS Safety Report 8509589-4 (Version None)
Quarter: 2012Q3

REPORT INFORMATION
  Report Type: 
  Country: None (occurrence: None)
  Receive Date: 20120713
  Receipt Date: 20120704
  Transmission Date: 20120928
  Serious: No
  Sender: FDA-Public Use
  Company Number: CA-JNJFOC-20120702511

PATIENT
  Sex: Female
  Weight: 58 kg

DRUGS (2)
  1. REMICADE [Suspect]
     Indication: RHEUMATOID ARTHRITIS
     Route: 042
     Dates: start: 20060101
  2. REMICADE [Suspect]
     Indication: CROHN'S DISEASE
     Route: 042
     Dates: start: 20060101

REACTIONS (2)
  - PHARYNGITIS STREPTOCOCCAL [None]
  - URINARY TRACT INFECTION [None]
